FAERS Safety Report 20578831 (Version 1)
Quarter: 2022Q1

REPORT INFORMATION
  Report Type: Spontaneous
  Country: RU (occurrence: RU)
  Receive Date: 20220310
  Receipt Date: 20220310
  Transmission Date: 20220424
  Serious: Yes (Hospitalization)
  Sender: FDA-Public Use
  Company Number: RU-DAIICHI SANKYO EUROPE GMBH-DSE-2022-107756

PATIENT
  Age: 60 Year
  Sex: Female
  Weight: 75 kg

DRUGS (6)
  1. EFFIENT [Suspect]
     Active Substance: PRASUGREL HYDROCHLORIDE
     Indication: Thrombosis prophylaxis
     Dosage: 60 MG, QD
     Route: 048
     Dates: start: 20211107, end: 20211107
  2. EFFIENT [Suspect]
     Active Substance: PRASUGREL HYDROCHLORIDE
     Dosage: 10 MG, QD
     Route: 048
     Dates: start: 20211108, end: 20220220
  3. ASPIRIN [Concomitant]
     Active Substance: ASPIRIN
     Indication: Thrombosis prophylaxis
     Dosage: 100 MG
     Dates: start: 20211107
  4. METOPROLOL [Concomitant]
     Active Substance: METOPROLOL
     Indication: Coronary artery disease
     Dosage: 50 MG, BID
  5. CRESTOR [Concomitant]
     Active Substance: ROSUVASTATIN CALCIUM
     Indication: Coronary artery disease
     Dosage: UNK
     Route: 048
     Dates: end: 20220220
  6. EXFORGE [Concomitant]
     Active Substance: AMLODIPINE BESYLATE\VALSARTAN
     Indication: Hypertension
     Dosage: UNK
     Route: 048
     Dates: end: 20220220

REACTIONS (3)
  - Acute myocardial infarction [Recovered/Resolved]
  - Coronary artery restenosis [Recovered/Resolved]
  - COVID-19 pneumonia [Recovered/Resolved]

NARRATIVE: CASE EVENT DATE: 20211101
